FAERS Safety Report 15766431 (Version 2)
Quarter: 2019Q1

REPORT INFORMATION
  Report Type: Report from Study
  Country: US (occurrence: US)
  Receive Date: 20181227
  Receipt Date: 20190130
  Transmission Date: 20190417
  Serious: Yes (Hospitalization, Other)
  Sender: FDA-Public Use
  Company Number: PHEH2018US054390

PATIENT
  Age: 76 Year
  Sex: Female
  Weight: 62.5 kg

DRUGS (1)
  1. ZARXIO [Suspect]
     Active Substance: FILGRASTIM-SNDZ
     Indication: PRODUCT USED FOR UNKNOWN INDICATION
     Route: 065

REACTIONS (7)
  - Asthenia [Not Recovered/Not Resolved]
  - Encephalopathy [Unknown]
  - Pyrexia [Not Recovered/Not Resolved]
  - Pancreatic carcinoma [Unknown]
  - Hypokinesia [Unknown]
  - Disease progression [Unknown]
  - Lethargy [Unknown]

NARRATIVE: CASE EVENT DATE: 20180412
